FAERS Safety Report 26215723 (Version 1)
Quarter: 2025Q4

REPORT INFORMATION
  Report Type: Report from Study
  Country: US (occurrence: US)
  Receive Date: 20251231
  Receipt Date: 20251231
  Transmission Date: 20260118
  Serious: Yes (Other)
  Sender: ACADIA PHARMACEUTICALS
  Company Number: US-ACADIA PHARMACEUTICALS INC.-ACA-2025-PIM-013672

PATIENT
  Age: 77 Year
  Sex: Male

DRUGS (8)
  1. NUPLAZID [Suspect]
     Active Substance: PIMAVANSERIN TARTRATE
     Indication: Parkinson^s disease psychosis
     Dosage: 34 MILLIGRAM, QD
     Route: 048
     Dates: start: 20250717, end: 20251210
  2. ATORVASTATIN [Concomitant]
     Active Substance: ATORVASTATIN
  3. FINASTERIDE [Concomitant]
     Active Substance: FINASTERIDE
  4. CARBIDOPA\LEVODOPA [Concomitant]
     Active Substance: CARBIDOPA\LEVODOPA
  5. MIRTAZAPINE [Concomitant]
     Active Substance: MIRTAZAPINE
  6. NITROGLYCERIN [Concomitant]
     Active Substance: NITROGLYCERIN
  7. QUETIAPINE [Concomitant]
     Active Substance: QUETIAPINE
  8. MIRABEGRON [Concomitant]
     Active Substance: MIRABEGRON

REACTIONS (2)
  - Hallucination [Unknown]
  - Drug ineffective [Unknown]

NARRATIVE: CASE EVENT DATE: 20251210
